FAERS Safety Report 9270493 (Version 5)
Quarter: 2014Q4

REPORT INFORMATION
  Report Type: Spontaneous
  Country: US (occurrence: US)
  Receive Date: 20130503
  Receipt Date: 20141023
  Transmission Date: 20150529
  Serious: No
  Sender: FDA-Public Use
  Company Number: US-009507513-1305USA000405

PATIENT
  Sex: Male
  Weight: 81.18 kg

DRUGS (1)
  1. PROPECIA [Suspect]
     Active Substance: FINASTERIDE
     Indication: ALOPECIA
     Dosage: 1 MG, QD
     Route: 048
     Dates: start: 20070122, end: 201109

REACTIONS (21)
  - Weight decreased [Unknown]
  - Fungal infection [Unknown]
  - Hypotension [Unknown]
  - Erectile dysfunction [Not Recovered/Not Resolved]
  - High risk sexual behaviour [Unknown]
  - Back pain [Unknown]
  - Sexual dysfunction [Not Recovered/Not Resolved]
  - Tinea cruris [Unknown]
  - Acne [Unknown]
  - Upper respiratory tract infection [Unknown]
  - Libido decreased [Unknown]
  - Hypogonadism [Unknown]
  - Fatigue [Unknown]
  - Oestradiol decreased [Unknown]
  - Sinusitis [Unknown]
  - Testicular disorder [Unknown]
  - Weight gain poor [Unknown]
  - Drug ineffective [Unknown]
  - Testicular atrophy [Unknown]
  - Temperature intolerance [Unknown]
  - Intervertebral disc degeneration [Unknown]

NARRATIVE: CASE EVENT DATE: 20081114
